FAERS Safety Report 5154048-2 (Version None)
Quarter: 2006Q4

REPORT INFORMATION
  Report Type: 
  Country: None (occurrence: None)
  Receive Date: 20061116
  Receipt Date: 20061116
  Transmission Date: 20070319
  Serious: Yes (Hospitalization)
  Sender: FDA-Public Use
  Company Number: None

PATIENT
  Age: 30 Year
  Sex: Female

DRUGS (16)
  1. CARDIZEM [Suspect]
     Indication: ATRIAL FIBRILLATION
     Dates: start: 20050331, end: 20050406
  2. CARDIZEM [Suspect]
     Indication: HYPERTENSION
     Dates: start: 20050331, end: 20050406
  3. TEQUIN [Suspect]
     Indication: CELLULITIS
     Dates: start: 20050331, end: 20050406
  4. FOSAMAX [Concomitant]
  5. ASPIRIN [Concomitant]
  6. BACITRACIN OIMENT [Concomitant]
  7. NEURONTIN [Concomitant]
  8. IBUPROFEN [Concomitant]
  9. LEVOTHYROXINE SODIUM [Concomitant]
  10. ZYVOX [Concomitant]
  11. LISINOPRIL [Concomitant]
  12. METOPROLOL SUCCINATE [Concomitant]
  13. POTASSIUM CHLORIDE [Concomitant]
  14. ZOCOR [Concomitant]
  15. DEMADEX [Concomitant]
  16. PERCOCET [Concomitant]

REACTIONS (1)
  - BLISTER [None]
